FAERS Safety Report 8560740-X (Version None)
Quarter: 2012Q3

REPORT INFORMATION
  Report Type: 
  Country: None (occurrence: None)
  Receive Date: 20120802
  Receipt Date: 20120730
  Transmission Date: 20120928
  Serious: Yes (Other)
  Sender: FDA-Public Use
  Company Number: PHHY2012AU065064

PATIENT
  Sex: Female

DRUGS (4)
  1. VALIUM [Concomitant]
     Indication: IRRITABLE BOWEL SYNDROME
  2. PROCHLORPERAZINE [Concomitant]
     Indication: IRRITABLE BOWEL SYNDROME
  3. MOTILIUM [Concomitant]
     Indication: IRRITABLE BOWEL SYNDROME
  4. FLUOXETINE [Suspect]
     Route: 048

REACTIONS (2)
  - ABDOMINAL DISCOMFORT [None]
  - IRRITABLE BOWEL SYNDROME [None]
